FAERS Safety Report 4277672-8 (Version None)
Quarter: 2004Q1

REPORT INFORMATION
  Report Type: 
  Country: None (occurrence: None)
  Receive Date: 20040121
  Receipt Date: 20040109
  Transmission Date: 20041129
  Serious: Yes (Other)
  Sender: FDA-Public Use
  Company Number: USA-2004-0012398

PATIENT
  Age: 23 Year
  Sex: Female

DRUGS (1)
  1. OXYCONTIN [Suspect]
     Dosage: NASAL
     Route: 045

REACTIONS (5)
  - CHILD ABUSE [None]
  - DRUG ABUSER [None]
  - DRUG TOXICITY [None]
  - MEDICATION ERROR [None]
  - MURDER [None]
